FAERS Safety Report 9501045 (Version 1)
Quarter: 2013Q3

REPORT INFORMATION
  Report Type: Report from Study
  Country: US (occurrence: US)
  Receive Date: 20130905
  Receipt Date: 20130905
  Transmission Date: 20140515
  Serious: Yes (Other)
  Sender: FDA-Public Use
  Company Number: US-ROCHE-1268548

PATIENT
  Age: 61 Year
  Sex: Male

DRUGS (1)
  1. VEMURAFENIB [Suspect]
     Indication: METASTATIC MALIGNANT MELANOMA
     Route: 048
     Dates: start: 20111101

REACTIONS (6)
  - Thrombosis [Unknown]
  - Back pain [Not Recovered/Not Resolved]
  - Skin papilloma [Not Recovered/Not Resolved]
  - Alopecia [Recovering/Resolving]
  - Blood creatinine increased [Unknown]
  - Squamous cell carcinoma of skin [Not Recovered/Not Resolved]
